FAERS Safety Report 20930380 (Version 1)
Quarter: 2022Q2

REPORT INFORMATION
  Report Type: Spontaneous
  Country: US (occurrence: US)
  Receive Date: 20220608
  Receipt Date: 20220608
  Transmission Date: 20220721
  Serious: Yes (Death, Other)
  Sender: FDA-Public Use
  Company Number: US-BRISTOL-MYERS SQUIBB COMPANY-2022-050737

PATIENT
  Age: 90 Year
  Sex: Male

DRUGS (1)
  1. ELIQUIS [Suspect]
     Active Substance: APIXABAN
     Indication: Product used for unknown indication
     Dosage: DOSE : 5MG; FREQ : TWICE PER DAY
     Route: 048

REACTIONS (5)
  - Pneumonia [Fatal]
  - Cerebrovascular accident [Unknown]
  - Urinary tract infection [Unknown]
  - Kidney infection [Unknown]
  - Sepsis [Unknown]
